FAERS Safety Report 10508974 (Version 1)
Quarter: 2014Q3

REPORT INFORMATION
  Report Type: Spontaneous
  Country: US (occurrence: None)
  Receive Date: 20140915
  Receipt Date: 20140915
  Transmission Date: 20150326
  Serious: Yes (Other)
  Sender: FDA-Public Use
  Company Number: 2014-US-002101

PATIENT
  Age: 60 Year
  Sex: Male

DRUGS (1)
  1. XYREM [Suspect]
     Active Substance: SODIUM OXYBATE
     Indication: INSOMNIA
     Route: 048
     Dates: start: 201312, end: 201401

REACTIONS (5)
  - Apnoea [None]
  - Incorrect dose administered [None]
  - Dyspnoea [None]
  - Respiratory rate decreased [None]
  - Off label use [None]

NARRATIVE: CASE EVENT DATE: 201312
